FAERS Safety Report 4376572-2 (Version None)
Quarter: 2004Q2

REPORT INFORMATION
  Report Type: 
  Country: None (occurrence: None)
  Receive Date: 20040614
  Receipt Date: 20040604
  Transmission Date: 20050107
  Serious: Yes (Life-Threatening, Hospitalization, Other)
  Sender: FDA-Public Use
  Company Number: FR-JNJFOC-20040404065

PATIENT
  Age: 27 Year
  Sex: Female
  Weight: 51 kg

DRUGS (6)
  1. REMICADE [Suspect]
     Route: 042
  2. REMICADE [Suspect]
     Route: 042
  3. REMICADE [Suspect]
     Route: 042
  4. REMICADE [Suspect]
     Indication: CROHN'S DISEASE
     Route: 042
  5. IMUREL [Suspect]
     Indication: CROHN'S DISEASE
     Route: 049
  6. CORTANCYL [Suspect]
     Indication: CROHN'S DISEASE
     Route: 049
     Dates: start: 20010615

REACTIONS (1)
  - CERVIX CARCINOMA [None]
